FAERS Safety Report 17147401 (Version 1)
Quarter: 2019Q4

REPORT INFORMATION
  Report Type: Spontaneous
  Country: IL (occurrence: IL)
  Receive Date: 20191212
  Receipt Date: 20191212
  Transmission Date: 20200122
  Serious: Yes (Other)
  Sender: FDA-Public Use
  Company Number: IL-009507513-1912ISR001894

PATIENT
  Sex: Male

DRUGS (2)
  1. TEMOZOLOMIDE. [Suspect]
     Active Substance: TEMOZOLOMIDE
     Indication: GLIOBLASTOMA MULTIFORME
     Dosage: 75 MG/M^2 BODY SURFACE AREA (BSA) EVERY DAY DURING THE PERIOD OF RT
     Route: 048
  2. TEMOZOLOMIDE. [Suspect]
     Active Substance: TEMOZOLOMIDE
     Dosage: 150 MG/M^2 BODY SURFACE AREA (BSA) EVERY DAY FOR 5 DAYS EVERY 28 DAYS FOR 6 CYCLES OF ADJUVANT THERA
     Route: 048

REACTIONS (2)
  - Toxicity to various agents [Unknown]
  - Glioblastoma multiforme [Unknown]
